FAERS Safety Report 12738485 (Version 1)
Quarter: 2016Q3

REPORT INFORMATION
  Report Type: Spontaneous
  Country: US (occurrence: US)
  Receive Date: 20160913
  Receipt Date: 20160913
  Transmission Date: 20161109
  Serious: Yes (Hospitalization)
  Sender: FDA-Public Use
  Company Number: US-PFIZER INC-2016424580

PATIENT
  Age: 60 Year
  Sex: Female
  Weight: 67 kg

DRUGS (2)
  1. SUTENT [Suspect]
     Active Substance: SUNITINIB MALATE
     Dosage: 50 MG, DAILY 28 DAYS ON, 14 DAYS OFF
     Route: 048
  2. ONDANSETRON ODT DRLA [Concomitant]
     Dosage: SPARINGLY

REACTIONS (1)
  - Gastric perforation [Unknown]
